FAERS Safety Report 24588477 (Version 1)
Quarter: 2024Q4

REPORT INFORMATION
  Report Type: Spontaneous
  Country: BR (occurrence: BR)
  Receive Date: 20241107
  Receipt Date: 20241107
  Transmission Date: 20250115
  Serious: Yes (Other)
  Sender: SANDOZ
  Company Number: BR-002147023-NVSC2024BR199974

PATIENT
  Sex: Female

DRUGS (2)
  1. ANASTROZOLE [Suspect]
     Active Substance: ANASTROZOLE
     Indication: Product used for unknown indication
     Dosage: UNK
     Route: 065
  2. KISQALI [Suspect]
     Active Substance: RIBOCICLIB
     Indication: Product used for unknown indication
     Dosage: UNK
     Route: 065
     Dates: start: 20240616

REACTIONS (7)
  - Neutropenia [Unknown]
  - Decreased immune responsiveness [Unknown]
  - Fluid retention [Unknown]
  - Inflammation [Unknown]
  - Gastrointestinal disorder [Unknown]
  - Thermal burn [Unknown]
  - Blister [Unknown]
